FAERS Safety Report 7329366-X (Version None)
Quarter: 2011Q1

REPORT INFORMATION
  Report Type: 
  Country: None (occurrence: None)
  Receive Date: 20110303
  Receipt Date: 20110223
  Transmission Date: 20110831
  Serious: Yes (Other)
  Sender: FDA-Public Use
  Company Number: CHPA2011US03194

PATIENT
  Age: 71 Year
  Sex: Female
  Weight: 98.866 kg

DRUGS (1)
  1. THERAFLU NIGHTTIME SEVERE COLD WARMING SYRUP [Suspect]
     Indication: NASOPHARYNGITIS
     Dosage: 6 TSP, BID
     Route: 048
     Dates: start: 20110222, end: 20110222

REACTIONS (5)
  - INCREASED UPPER AIRWAY SECRETION [None]
  - DYSPNOEA [None]
  - COUGH [None]
  - PSYCHOMOTOR HYPERACTIVITY [None]
  - HALLUCINATION [None]
